FAERS Safety Report 16832118 (Version 1)
Quarter: 2019Q3

REPORT INFORMATION
  Report Type: Spontaneous
  Country: AR (occurrence: AR)
  Receive Date: 20190920
  Receipt Date: 20190920
  Transmission Date: 20191005
  Serious: Yes (Hospitalization, Other)
  Sender: FDA-Public Use
  Company Number: AR-ASTRAZENECA-2019SF32091

PATIENT
  Age: 54 Year
  Sex: Male

DRUGS (3)
  1. BRILINTA [Suspect]
     Active Substance: TICAGRELOR
     Indication: THROMBOSIS
     Route: 048
     Dates: start: 201908
  2. ASPIRIN. [Concomitant]
     Active Substance: ASPIRIN
  3. CLOPIDOGREL [Concomitant]
     Active Substance: CLOPIDOGREL BISULFATE
     Dosage: 75 MG / DAY (NO LOAD)

REACTIONS (4)
  - Hypotension [Unknown]
  - Oesophageal carcinoma [Not Recovered/Not Resolved]
  - Malaise [Unknown]
  - Haematochezia [Unknown]

NARRATIVE: CASE EVENT DATE: 201908
